FAERS Safety Report 9933577 (Version 2)
Quarter: 2014Q1

REPORT INFORMATION
  Report Type: Report from Study
  Country: US (occurrence: US)
  Receive Date: 20140228
  Receipt Date: 20140228
  Transmission Date: 20141002
  Serious: No
  Sender: FDA-Public Use
  Company Number: US-MYLANLABS-2013S1024928

PATIENT
  Age: 14 Year
  Sex: Female
  Weight: 61.24 kg

DRUGS (2)
  1. AMNESTEEM CAPSULES [Suspect]
     Indication: ACNE
     Dosage: TAKES 40MG QOD ON OPPOSITE DAYS OF THE 80MG QOD
     Route: 048
     Dates: start: 201209, end: 20131103
  2. AMNESTEEM CAPSULES [Suspect]
     Indication: ACNE
     Dosage: TAKES 40MG QOD ON OPPOSITE DAYS OF THE 80MG QOD
     Route: 048
     Dates: start: 201209, end: 20131103

REACTIONS (1)
  - Depression [Not Recovered/Not Resolved]
